FAERS Safety Report 13424088 (Version 1)
Quarter: 2017Q2

REPORT INFORMATION
  Report Type: Spontaneous
  Country: US (occurrence: US)
  Receive Date: 20170410
  Receipt Date: 20170410
  Transmission Date: 20170830
  Serious: No
  Sender: FDA-Public Use
  Company Number: US-MALLINCKRODT-T201602352

PATIENT
  Sex: Male

DRUGS (1)
  1. METHADONE [Suspect]
     Active Substance: METHADONE HYDROCHLORIDE
     Indication: PAIN
     Dosage: TOTAL OF 100 MG/DAY
     Route: 048

REACTIONS (3)
  - Dry mouth [Unknown]
  - Dental caries [Unknown]
  - Cardiac disorder [Unknown]
